FAERS Safety Report 7704674-9 (Version None)
Quarter: 2011Q3

REPORT INFORMATION
  Report Type: 
  Country: None (occurrence: None)
  Receive Date: 20110823
  Receipt Date: 20110815
  Transmission Date: 20111222
  Serious: Yes (Other)
  Sender: FDA-Public Use
  Company Number: US-JNJFOC-20110807382

PATIENT
  Sex: Male
  Weight: 74.84 kg

DRUGS (4)
  1. ASACOL [Concomitant]
     Indication: CROHN'S DISEASE
     Dates: start: 20090101
  2. REMICADE [Suspect]
     Indication: COLITIS ULCERATIVE
     Route: 042
     Dates: start: 20090101
  3. PREVACID [Concomitant]
     Indication: CROHN'S DISEASE
     Dates: start: 20090101
  4. REMICADE [Suspect]
     Indication: CROHN'S DISEASE
     Route: 042
     Dates: start: 20090101

REACTIONS (4)
  - THERAPEUTIC RESPONSE DECREASED [None]
  - INFLUENZA LIKE ILLNESS [None]
  - JOINT LOCK [None]
  - ARTHRALGIA [None]
